FAERS Safety Report 23871584 (Version 1)
Quarter: 2024Q2

REPORT INFORMATION
  Report Type: Spontaneous
  Country: TR (occurrence: TR)
  Receive Date: 20240519
  Receipt Date: 20240519
  Transmission Date: 20240716
  Serious: Yes (Other)
  Sender: FDA-Public Use
  Company Number: TR-BRISTOL-MYERS SQUIBB COMPANY-2024-077091

PATIENT
  Age: 51 Year
  Sex: Male

DRUGS (13)
  1. POMALIDOMIDE [Suspect]
     Active Substance: POMALIDOMIDE
     Indication: Plasma cell myeloma
  2. POMALIDOMIDE [Suspect]
     Active Substance: POMALIDOMIDE
  3. POMALIDOMIDE [Suspect]
     Active Substance: POMALIDOMIDE
     Dates: start: 20231218
  4. CYCLOPHOSPHAMIDE [Concomitant]
     Active Substance: CYCLOPHOSPHAMIDE
     Route: 048
  5. CYCLOPHOSPHAMIDE [Concomitant]
     Active Substance: CYCLOPHOSPHAMIDE
     Dates: start: 202011
  6. DEXAMETHASONE [Concomitant]
     Active Substance: DEXAMETHASONE
     Dosage: FREQUENCY- 1-4 AND 15-18 DAYS
  7. DEXAMETHASONE [Concomitant]
     Active Substance: DEXAMETHASONE
     Dates: start: 202011
  8. DEXAMETHASONE [Concomitant]
     Active Substance: DEXAMETHASONE
     Dosage: FREQUENCY- 1-2, 8-9, 15-16. DAYS?1-8. CYCLE 1-2, 4-5, 8-9, 11-12 DAYS?1,2,8,9 AFTER THE 8TH CYCLE. D
     Dates: start: 20231218
  9. ASPIRIN [Concomitant]
     Active Substance: ASPIRIN
     Dosage: FREQUENCY- 1-4 AND 15-18 DAYS
  10. CARFILZOMIB [Concomitant]
     Active Substance: CARFILZOMIB
     Dates: start: 202011
  11. BORTEZOMIB [Concomitant]
     Active Substance: BORTEZOMIB
     Dosage: FREQUENCY- 1- 8-15. DAYS, 1-8. CYCLE:1,4,8,11. DAYS?AFTER THE 8TH CYCLE; 1ST AND 8TH DAY
     Dates: start: 20231218
  12. VALACYCLOVIR [Concomitant]
     Active Substance: VALACYCLOVIR HYDROCHLORIDE
     Indication: Prophylaxis
     Dates: start: 20231218
  13. ASPIRIN [Concomitant]
     Active Substance: ASPIRIN
     Indication: Prophylaxis
     Dates: start: 20231218

REACTIONS (3)
  - Venous thrombosis [Unknown]
  - Swelling face [Unknown]
  - Off label use [Unknown]

NARRATIVE: CASE EVENT DATE: 20240328
